FAERS Safety Report 11582782 (Version 1)
Quarter: 2015Q4

REPORT INFORMATION
  Report Type: Spontaneous
  Country: US (occurrence: US)
  Receive Date: 20151001
  Receipt Date: 20151001
  Transmission Date: 20160304
  Serious: Yes (Disabling, Other)
  Sender: FDA-Public Use
  Company Number: US-ROCHE-1638633

PATIENT
  Sex: Female

DRUGS (1)
  1. LUCENTIS [Suspect]
     Active Substance: RANIBIZUMAB
     Indication: CYSTOID MACULAR OEDEMA
     Route: 065

REACTIONS (12)
  - Blindness [Not Recovered/Not Resolved]
  - Blindness unilateral [Unknown]
  - Depression [Not Recovered/Not Resolved]
  - Polymyalgia rheumatica [Not Recovered/Not Resolved]
  - Feeling abnormal [Not Recovered/Not Resolved]
  - Vision blurred [Not Recovered/Not Resolved]
  - Intraocular pressure fluctuation [Not Recovered/Not Resolved]
  - Eye pain [Unknown]
  - Ocular discomfort [Not Recovered/Not Resolved]
  - Intraocular pressure increased [Recovered/Resolved]
  - Glaucoma [Not Recovered/Not Resolved]
  - Disorientation [Not Recovered/Not Resolved]
